FAERS Safety Report 7413331-8 (Version None)
Quarter: 2011Q2

REPORT INFORMATION
  Report Type: 
  Country: None (occurrence: None)
  Receive Date: 20110413
  Receipt Date: 20100412
  Transmission Date: 20111010
  Serious: No
  Sender: FDA-Public Use
  Company Number: US-ASTRAZENECA-2010SE16060

PATIENT
  Sex: Female

DRUGS (1)
  1. TENORMIN [Suspect]

REACTIONS (5)
  - PARAESTHESIA [None]
  - OEDEMA PERIPHERAL [None]
  - WRIST FRACTURE [None]
  - NERVE INJURY [None]
  - PAIN IN EXTREMITY [None]
